FAERS Safety Report 16846336 (Version 5)
Quarter: 2021Q1

REPORT INFORMATION
  Report Type: Spontaneous
  Country: US (occurrence: US)
  Receive Date: 20190924
  Receipt Date: 20210114
  Transmission Date: 20210419
  Serious: Yes (Life-Threatening, Hospitalization, Disabling, Other)
  Sender: FDA-Public Use
  Company Number: PHEH2019US038960

PATIENT
  Age: 51 Year
  Sex: Female
  Weight: 68.7 kg

DRUGS (1)
  1. GILENYA [Suspect]
     Active Substance: FINGOLIMOD HYDROCHLORIDE
     Indication: RELAPSING-REMITTING MULTIPLE SCLEROSIS
     Dosage: 0.5 MG, QD
     Route: 048
     Dates: start: 20150921, end: 20190705

REACTIONS (13)
  - Clumsiness [Unknown]
  - Slow speech [Unknown]
  - Limb discomfort [Not Recovered/Not Resolved]
  - Personality change [Unknown]
  - Confusional state [Unknown]
  - Micturition urgency [Not Recovered/Not Resolved]
  - Dysarthria [Not Recovered/Not Resolved]
  - Progressive multifocal leukoencephalopathy [Recovering/Resolving]
  - Cognitive disorder [Unknown]
  - Aphasia [Not Recovered/Not Resolved]
  - Brain stem syndrome [Unknown]
  - Fall [Not Recovered/Not Resolved]
  - Dysphemia [Not Recovered/Not Resolved]

NARRATIVE: CASE EVENT DATE: 20190521
